FAERS Safety Report 24962006 (Version 1)
Quarter: 2025Q1

REPORT INFORMATION
  Report Type: Spontaneous
  Country: US (occurrence: US)
  Receive Date: 20250212
  Receipt Date: 20250212
  Transmission Date: 20250409
  Serious: Yes (Other)
  Sender: MYLAN
  Company Number: US-MYLANLABS-2025M1012201

PATIENT

DRUGS (1)
  1. LEVOTHYROXINE [Suspect]
     Active Substance: LEVOTHYROXINE
     Indication: Hypothyroidism
     Route: 065

REACTIONS (6)
  - Atrial fibrillation [Unknown]
  - Palpitations [Unknown]
  - Insomnia [Unknown]
  - Recalled product administered [Unknown]
  - Product measured potency issue [Unknown]
  - Recalled product [Unknown]

NARRATIVE: CASE EVENT DATE: 20241201
